FAERS Safety Report 9223011 (Version 1)
Quarter: 2013Q2

REPORT INFORMATION
  Report Type: Report from Study
  Country: NZ (occurrence: NZ)
  Receive Date: 20130410
  Receipt Date: 20130410
  Transmission Date: 20140414
  Serious: Yes (Death)
  Sender: FDA-Public Use
  Company Number: NZ-ROCHE-1210676

PATIENT
  Sex: 0

DRUGS (1)
  1. ALTEPLASE [Suspect]
     Indication: CEREBROVASCULAR ACCIDENT
     Dosage: 0.9 MG/KG (MAX 90 MG): 10 % GIVEN AS BOLUS OVER 1 MINUTE; REMAINING 90 % AS INFUSION OVER 60 MINUTES
     Route: 042

REACTIONS (1)
  - Pulmonary embolism [Fatal]
